FAERS Safety Report 13172591 (Version 3)
Quarter: 2017Q1

REPORT INFORMATION
  Report Type: Spontaneous
  Country: US (occurrence: US)
  Receive Date: 20170201
  Receipt Date: 20170320
  Transmission Date: 20170428
  Serious: No
  Sender: FDA-Public Use
  Company Number: US-GLAXOSMITHKLINE-US2017013435

PATIENT
  Age: 50 Year
  Sex: Female

DRUGS (4)
  1. BOTOX [Concomitant]
     Active Substance: ONABOTULINUMTOXINA
  2. VALIUM [Concomitant]
     Active Substance: DIAZEPAM
     Indication: SLEEP DISORDER
  3. IMITREX [Suspect]
     Active Substance: SUMATRIPTAN SUCCINATE
     Dosage: UNK
  4. IMITREX [Suspect]
     Active Substance: SUMATRIPTAN SUCCINATE
     Indication: MIGRAINE
     Dosage: 6 MG, PRN
     Route: 058
     Dates: start: 2007

REACTIONS (5)
  - Flushing [Unknown]
  - Injection site pain [Unknown]
  - Drug ineffective [Unknown]
  - Product quality issue [Unknown]
  - Somnolence [Unknown]

NARRATIVE: CASE EVENT DATE: 20170130
